FAERS Safety Report 9786076 (Version 1)
Quarter: 2013Q4

REPORT INFORMATION
  Report Type: Spontaneous
  Country: RU (occurrence: RU)
  Receive Date: 20131227
  Receipt Date: 20131227
  Transmission Date: 20140711
  Serious: Yes (Death)
  Sender: FDA-Public Use
  Company Number: PHHY2013RU152077

PATIENT
  Sex: 0

DRUGS (1)
  1. LEPONEX [Suspect]
     Route: 048

REACTIONS (2)
  - Alcohol poisoning [Fatal]
  - Alcohol interaction [Fatal]
